FAERS Safety Report 4386188-X (Version None)
Quarter: 2004Q2

REPORT INFORMATION
  Report Type: 
  Country: None (occurrence: None)
  Receive Date: 20040628
  Receipt Date: 20040628
  Transmission Date: 20050107
  Serious: Yes (Other)
  Sender: FDA-Public Use
  Company Number: None

PATIENT
  Age: 51 Year
  Sex: Female
  Weight: 76.2043 kg

DRUGS (14)
  1. CLONAZEPAM [Suspect]
     Indication: ANXIETY
     Dosage: 1 MG PO TID/ON FOR YEARS TO PRESENT
     Route: 048
  2. CLONAZEPAM [Suspect]
     Indication: PSYCHOTIC DISORDER
     Dosage: 1 MG PO TID/ON FOR YEARS TO PRESENT
     Route: 048
  3. ADVAIR DISKUS 100/50 [Concomitant]
  4. ALLEGRA [Concomitant]
  5. SEROQUEL [Concomitant]
  6. TRILEPTAL [Concomitant]
  7. AMBIEN [Concomitant]
  8. EFFEXOR [Concomitant]
  9. OMIT ILLEGIBLE [Concomitant]
  10. OMIT ILLEGIBLE [Concomitant]
  11. PROZAC [Concomitant]
  12. TRAZODONE HCL [Concomitant]
  13. DARVOCET-N 100 [Concomitant]
  14. SOMA [Concomitant]

REACTIONS (4)
  - ACCIDENT [None]
  - CONDITION AGGRAVATED [None]
  - CONFUSIONAL STATE [None]
  - MENTAL DISORDER [None]
